FAERS Safety Report 7079799-4 (Version None)
Quarter: 2010Q4

REPORT INFORMATION
  Report Type: 
  Country: None (occurrence: None)
  Receive Date: 20101102
  Receipt Date: 20101021
  Transmission Date: 20110411
  Serious: Yes (Other)
  Sender: FDA-Public Use
  Company Number: GB-PFIZER INC-2010134349

PATIENT
  Sex: Male

DRUGS (3)
  1. LYRICA [Suspect]
     Dosage: 15 MG, 2X/DAY
  2. KEPPRA [Suspect]
     Dosage: 2200 DF, 1000 MORNING, 1200 EVENING
  3. DEXAMETHASONE [Suspect]
     Dosage: 0.025 MG, 1X/DAY

REACTIONS (6)
  - BONE DENSITY DECREASED [None]
  - DISORIENTATION [None]
  - DIZZINESS [None]
  - FATIGUE [None]
  - INSOMNIA [None]
  - NAUSEA [None]
